FAERS Safety Report 7375924-6 (Version None)
Quarter: 2011Q1

REPORT INFORMATION
  Report Type: 
  Country: None (occurrence: None)
  Receive Date: 20110325
  Receipt Date: 20110317
  Transmission Date: 20110831
  Serious: Yes (Hospitalization, Other)
  Sender: FDA-Public Use
  Company Number: R0016426A

PATIENT
  Age: 68 Year
  Sex: Female
  Weight: 59 kg

DRUGS (2)
  1. BLINDED VACCINE [Suspect]
     Indication: PROPHYLAXIS
     Route: 030
     Dates: start: 20101028, end: 20101028
  2. VIANI [Suspect]
     Route: 055
     Dates: start: 20080101

REACTIONS (1)
  - PNEUMONIA [None]
